FAERS Safety Report 4616588-1 (Version None)
Quarter: 2005Q1

REPORT INFORMATION
  Report Type: 
  Country: None (occurrence: None)
  Receive Date: 20050318
  Receipt Date: 20050314
  Transmission Date: 20050727
  Serious: Yes (Death)
  Sender: FDA-Public Use
  Company Number: 163-20785-05020232

PATIENT
  Age: 56 Year
  Sex: Male

DRUGS (2)
  1. THALOMID [Suspect]
     Indication: MANTLE CELL LYMPHOMA
     Dosage: 200-400MG, QD, ORAL
     Route: 048
     Dates: start: 20041210, end: 20050208
  2. DECADRON [Suspect]
     Dates: start: 20041210, end: 20050208

REACTIONS (3)
  - CEREBRAL HAEMORRHAGE [None]
  - MALIGNANT NEOPLASM PROGRESSION [None]
  - MANTLE CELL LYMPHOMA [None]
